FAERS Safety Report 7885333-9 (Version None)
Quarter: 2011Q4

REPORT INFORMATION
  Report Type: 
  Country: None (occurrence: None)
  Receive Date: 20111102
  Receipt Date: 20111027
  Transmission Date: 20120403
  Serious: Yes (Other)
  Sender: FDA-Public Use
  Company Number: US-SANOFI-AVENTIS-2011SA071055

PATIENT
  Age: 76 Year
  Sex: Female

DRUGS (7)
  1. PLAVIX [Suspect]
     Dates: start: 20111007
  2. SYNTHROID [Concomitant]
  3. PRAVACHOL [Concomitant]
  4. METOPROLOL TARTRATE [Concomitant]
  5. VITAMIN D [Concomitant]
  6. ASPIRIN [Concomitant]
  7. MAGNESIUM [Concomitant]

REACTIONS (8)
  - BLOOD PRESSURE INCREASED [None]
  - FACIAL PAIN [None]
  - NAUSEA [None]
  - ELECTROCARDIOGRAM CHANGE [None]
  - HEART RATE INCREASED [None]
  - ASTHENIA [None]
  - DYSGEUSIA [None]
  - ARTHRALGIA [None]
